FAERS Safety Report 15685016 (Version 1)
Quarter: 2018Q4

REPORT INFORMATION
  Report Type: Spontaneous
  Country: US (occurrence: US)
  Receive Date: 20181121
  Receipt Date: 20181121
  Transmission Date: 20190205
  Serious: No
  Sender: FDA-Public Use
  Company Number: None

PATIENT
  Age: 58 Year
  Sex: Male

DRUGS (2)
  1. CLOPIDOGREL [Suspect]
     Active Substance: CLOPIDOGREL BISULFATE
     Indication: STENT PATENCY MAINTENANCE
     Route: 048
     Dates: start: 20150904, end: 20181119
  2. ASPIRIN. [Suspect]
     Active Substance: ASPIRIN
     Indication: STENT PATENCY MAINTENANCE
     Route: 048
     Dates: start: 20100914

REACTIONS (3)
  - Haematoma [None]
  - Peripheral swelling [None]
  - Pain in extremity [None]

NARRATIVE: CASE EVENT DATE: 20181110
